FAERS Safety Report 4316875-0 (Version None)
Quarter: 2004Q1

REPORT INFORMATION
  Report Type: 
  Country: None (occurrence: None)
  Receive Date: 20040312
  Receipt Date: 20040312
  Transmission Date: 20041129
  Serious: No
  Sender: FDA-Public Use
  Company Number: None

PATIENT
  Age: 63 Year
  Sex: Female
  Weight: 90.7194 kg

DRUGS (11)
  1. TEQUIN [Suspect]
     Indication: BRONCHITIS
     Dosage: 400MG QD
     Dates: start: 20040308, end: 20040310
  2. TEQUIN [Suspect]
     Indication: CHRONIC OBSTRUCTIVE AIRWAYS DISEASE
     Dosage: 400MG QD
     Dates: start: 20040308, end: 20040310
  3. SEREVENT [Concomitant]
  4. PULMICORT [Concomitant]
  5. COMBIVENT [Concomitant]
  6. HYDROCHLOROTHIAZIDE [Concomitant]
  7. ATACAND [Concomitant]
  8. ELAVIL [Concomitant]
  9. TOPAMAX [Concomitant]
  10. AVANDIA [Concomitant]
  11. AMARYL [Concomitant]

REACTIONS (3)
  - AMNESIA [None]
  - HYPOGLYCAEMIA [None]
  - MENTAL STATUS CHANGES [None]
